FAERS Safety Report 10189022 (Version 2)
Quarter: 2014Q3

REPORT INFORMATION
  Report Type: Spontaneous
  Country: US (occurrence: US)
  Receive Date: 20140522
  Receipt Date: 20140702
  Transmission Date: 20150326
  Serious: Yes (Hospitalization, Other)
  Sender: FDA-Public Use
  Company Number: US-BAYER-2014-075142

PATIENT
  Age: 27 Year
  Sex: Female
  Weight: 61.22 kg

DRUGS (2)
  1. MIRENA [Suspect]
     Active Substance: LEVONORGESTREL
     Indication: CONTRACEPTION
     Dosage: 20 MCG/DL, CONT
     Route: 015
     Dates: start: 20071218, end: 20121220
  2. LEVAQUIN [Concomitant]
     Active Substance: LEVOFLOXACIN

REACTIONS (8)
  - Pelvic pain [None]
  - Uterine perforation [None]
  - Device dislocation [None]
  - Injury [None]
  - Device dislocation [None]
  - Pain [None]
  - Emotional distress [None]
  - Abdominal pain [None]

NARRATIVE: CASE EVENT DATE: 201212
